FAERS Safety Report 6078428-6 (Version None)
Quarter: 2009Q1

REPORT INFORMATION
  Report Type: 
  Country: None (occurrence: None)
  Receive Date: 20090212
  Receipt Date: 20090129
  Transmission Date: 20090719
  Serious: Yes (Hospitalization)
  Sender: FDA-Public Use
  Company Number: 2009S1001697

PATIENT
  Age: 67 Year
  Sex: Male
  Weight: 104.3273 kg

DRUGS (3)
  1. METOLAZONE [Suspect]
     Indication: OEDEMA PERIPHERAL
     Dosage: 2.5 MG;EVERY OTHER DAY;ORAL;5 MG;X1;ORAL
     Route: 048
     Dates: start: 20090122, end: 20090124
  2. METOLAZONE [Suspect]
     Indication: OEDEMA PERIPHERAL
     Dosage: 2.5 MG;EVERY OTHER DAY;ORAL;5 MG;X1;ORAL
     Route: 048
     Dates: start: 20090126, end: 20090126
  3. HYDROCHLOROTHIAZIDE [Suspect]
     Indication: OEDEMA
     Dosage: ORAL
     Route: 048

REACTIONS (7)
  - ANOREXIA [None]
  - ASTHENIA [None]
  - BLOOD SODIUM DECREASED [None]
  - DISORIENTATION [None]
  - DYSPEPSIA [None]
  - NAUSEA [None]
  - URINE OUTPUT DECREASED [None]
